FAERS Safety Report 14316327 (Version 2)
Quarter: 2018Q2

REPORT INFORMATION
  Report Type: Report from Study
  Country: US (occurrence: US)
  Receive Date: 20171222
  Receipt Date: 20180510
  Transmission Date: 20180711
  Serious: Yes (Other)
  Sender: FDA-Public Use
  Company Number: US-CIPLA (EU) LIMITED-2017US24511

PATIENT

DRUGS (4)
  1. EVEROLIMUS. [Suspect]
     Active Substance: EVEROLIMUS
     Indication: NON-RENAL CELL CARCINOMA OF KIDNEY
     Dosage: UNK
     Route: 065
  2. GEMCITABINE [Suspect]
     Active Substance: GEMCITABINE\GEMCITABINE HYDROCHLORIDE
     Indication: NON-RENAL CELL CARCINOMA OF KIDNEY
     Dosage: UNK
     Route: 065
  3. CISPLATIN. [Suspect]
     Active Substance: CISPLATIN
     Indication: NON-RENAL CELL CARCINOMA OF KIDNEY
     Dosage: UNK
     Route: 065
  4. SORAFENIB [Suspect]
     Active Substance: SORAFENIB
     Indication: NON-RENAL CELL CARCINOMA OF KIDNEY
     Dosage: UNK
     Route: 065

REACTIONS (1)
  - Malignant neoplasm progression [Unknown]
